FAERS Safety Report 9311856 (Version 1)
Quarter: 2013Q2

REPORT INFORMATION
  Report Type: Spontaneous
  Country: CN (occurrence: CN)
  Receive Date: 20130528
  Receipt Date: 20130528
  Transmission Date: 20140414
  Serious: Yes (Death, Other)
  Sender: FDA-Public Use
  Company Number: PHHY2013CN052562

PATIENT
  Age: 37 Year
  Sex: Male

DRUGS (4)
  1. DOCETAXEL [Suspect]
     Indication: SYNOVIAL SARCOMA
     Dosage: 110 MG, DAY 1 EVERY 21 DAYS FOR UP TO FIVE CYCLES
     Dates: start: 201102
  2. CISPLATIN [Suspect]
     Indication: SYNOVIAL SARCOMA
     Dosage: 40 MG, DAYS 1-3 EVERY 21 DAYS FOR UP TO FIVE CYCLES
     Dates: start: 201102
  3. ENDOSTAR [Suspect]
     Indication: SYNOVIAL SARCOMA
     Dosage: 15 MG, DAYS 1-14 EVERY 21 DAYS FOR UP TO FIVE CYCLES
     Dates: start: 201102
  4. CETUXIMAB [Suspect]
     Indication: SYNOVIAL SARCOMA
     Dosage: 600 MG, DAY 1 EVERY WEEK FOR UP TO THREE CYCLES
     Dates: start: 201107

REACTIONS (4)
  - Metastases to central nervous system [Fatal]
  - Central nervous system lesion [Unknown]
  - Pulmonary mass [Unknown]
  - Drug ineffective [Unknown]
